FAERS Safety Report 18957627 (Version 1)
Quarter: 2021Q1

REPORT INFORMATION
  Report Type: Spontaneous
  Country: US (occurrence: US)
  Receive Date: 20210302
  Receipt Date: 20210302
  Transmission Date: 20210420
  Serious: Yes (Other)
  Sender: FDA-Public Use
  Company Number: US-ALLERGAN-2015071US

PATIENT
  Age: 65 Year
  Sex: Male

DRUGS (1)
  1. NORCO [Suspect]
     Active Substance: ACETAMINOPHEN\HYDROCODONE BITARTRATE
     Indication: SPINAL PAIN
     Dosage: UNK
     Dates: start: 2007

REACTIONS (2)
  - Drug dependence [Unknown]
  - Pain [Unknown]
